FAERS Safety Report 12566366 (Version 2)
Quarter: 2016Q3

REPORT INFORMATION
  Report Type: Report from Study
  Country: US (occurrence: US)
  Receive Date: 20160718
  Receipt Date: 20160805
  Transmission Date: 20161109
  Serious: Yes (Other)
  Sender: FDA-Public Use
  Company Number: US-JNJFOC-20160708016

PATIENT
  Age: 17 Year
  Sex: Male
  Weight: 135.4 kg

DRUGS (16)
  1. REMICADE [Suspect]
     Active Substance: INFLIXIMAB
     Indication: CROHN^S DISEASE
     Dosage: FOR 60 DAYS
     Route: 042
  2. METHOCARBAMOL. [Concomitant]
     Active Substance: METHOCARBAMOL
     Route: 065
  3. MUPIROCIN. [Concomitant]
     Active Substance: MUPIROCIN
     Route: 061
     Dates: start: 20150315, end: 20160615
  4. SULFAMETHOXAZOLE [Concomitant]
     Active Substance: SULFAMETHOXAZOLE
     Route: 065
  5. DOXYCYCLINE HYCLATE. [Concomitant]
     Active Substance: DOXYCYCLINE HYCLATE
     Route: 065
  6. TOBRAMYCIN. [Concomitant]
     Active Substance: TOBRAMYCIN
     Indication: EYE DISORDER
     Route: 065
     Dates: start: 20151229, end: 20160615
  7. CODEINE [Concomitant]
     Active Substance: CODEINE
     Route: 065
  8. CYCLOBENZAPRINE [Concomitant]
     Active Substance: CYCLOBENZAPRINE
     Route: 065
  9. TRIMETHOPRIM. [Concomitant]
     Active Substance: TRIMETHOPRIM
     Route: 065
  10. DEXAMETHASONE. [Concomitant]
     Active Substance: DEXAMETHASONE
     Indication: EYE DISORDER
     Route: 065
     Dates: start: 20151229, end: 20160615
  11. CEFALEXIN [Concomitant]
     Active Substance: CEPHALEXIN
     Route: 065
  12. DICYCLOMINE [Concomitant]
     Active Substance: DICYCLOMINE HYDROCHLORIDE
     Dosage: AS NEEDED
     Route: 048
  13. METHOTREXATE SODIUM. [Concomitant]
     Active Substance: METHOTREXATE SODIUM
     Route: 048
     Dates: start: 20160615
  14. ACETAMINOPHEN. [Concomitant]
     Active Substance: ACETAMINOPHEN
     Route: 065
  15. FOLIC ACID. [Concomitant]
     Active Substance: FOLIC ACID
     Route: 048
     Dates: start: 20160615
  16. IBUPROFEN. [Concomitant]
     Active Substance: IBUPROFEN
     Route: 065

REACTIONS (21)
  - Abnormal weight gain [Unknown]
  - Liver function test abnormal [Unknown]
  - Dermatitis contact [Unknown]
  - Product use issue [Unknown]
  - Pilonidal cyst [Unknown]
  - Surgery [Recovering/Resolving]
  - Generalised anxiety disorder [Unknown]
  - Folliculitis [Unknown]
  - Staphylococcal skin infection [Unknown]
  - Cough [Recovered/Resolved]
  - Blood pressure abnormal [Unknown]
  - Epiploic appendagitis [Unknown]
  - Crohn^s disease [Unknown]
  - Rhinitis allergic [Unknown]
  - Erythema [Unknown]
  - Impetigo [Unknown]
  - Back pain [Recovered/Resolved]
  - Irritable bowel syndrome [Unknown]
  - Off label use [Unknown]
  - Insomnia [Unknown]
  - Decreased appetite [Recovered/Resolved]

NARRATIVE: CASE EVENT DATE: 201302
